FAERS Safety Report 18452972 (Version 1)
Quarter: 2020Q4

REPORT INFORMATION
  Report Type: Spontaneous
  Country: US (occurrence: US)
  Receive Date: 20201102
  Receipt Date: 20201102
  Transmission Date: 20210114
  Serious: Yes (Hospitalization)
  Sender: FDA-Public Use
  Company Number: None

PATIENT
  Age: 28 Year
  Sex: Male
  Weight: 72.6 kg

DRUGS (9)
  1. FAMOTIDINE. [Concomitant]
     Active Substance: FAMOTIDINE
  2. REMICADE [Concomitant]
     Active Substance: INFLIXIMAB
  3. HYDROXYZINE HCI [Concomitant]
  4. QD [Concomitant]
  5. POTASSIUM CHLORIDE. [Concomitant]
     Active Substance: POTASSIUM CHLORIDE
  6. XELJANZ XR [Suspect]
     Active Substance: TOFACITINIB CITRATE
     Dates: start: 20200317
  7. MULTIVITAMIN [Concomitant]
     Active Substance: VITAMINS
  8. CYANOCOBALAMIN. [Concomitant]
     Active Substance: CYANOCOBALAMIN
  9. VITAMIN B12 [Concomitant]
     Active Substance: CYANOCOBALAMIN

REACTIONS (14)
  - Proctalgia [None]
  - Dehydration [None]
  - Postoperative ileus [None]
  - Pyrexia [None]
  - Venous thrombosis [None]
  - Flatulence [None]
  - Large intestinal ulcer [None]
  - Tachycardia [None]
  - Pneumonia aspiration [None]
  - Acute kidney injury [None]
  - Thrombosis [None]
  - Gallbladder polyp [None]
  - Fatigue [None]
  - Diarrhoea haemorrhagic [None]
